FAERS Safety Report 8518175-1 (Version None)
Quarter: 2012Q3

REPORT INFORMATION
  Report Type: 
  Country: None (occurrence: None)
  Receive Date: 20120718
  Receipt Date: 20111017
  Transmission Date: 20120928
  Serious: No
  Sender: FDA-Public Use
  Company Number: US-BRISTOL-MYERS SQUIBB COMPANY-16168254

PATIENT
  Age: 54 Year
  Sex: Female
  Weight: 67 kg

DRUGS (1)
  1. COUMADIN [Suspect]
     Dosage: TOLERATE DOSE 6 MG
     Dates: start: 20101005

REACTIONS (1)
  - MYALGIA [None]
